FAERS Safety Report 4439899-1 (Version None)
Quarter: 2004Q3

REPORT INFORMATION
  Report Type: 
  Country: None (occurrence: None)
  Receive Date: 20040902
  Receipt Date: 20040826
  Transmission Date: 20050211
  Serious: Yes (Other)
  Sender: FDA-Public Use
  Company Number: US-MERCK-0408USA02135

PATIENT
  Age: 60 Year
  Sex: Female

DRUGS (6)
  1. CELEBREX [Concomitant]
     Route: 065
  2. PREMARIN [Concomitant]
     Route: 065
  3. ALLEGRA [Concomitant]
     Route: 065
  4. PROZAC [Concomitant]
     Route: 065
  5. SYNTHROID [Concomitant]
     Route: 065
  6. COZAAR [Suspect]
     Route: 048
     Dates: start: 20040501

REACTIONS (2)
  - BRADYARRHYTHMIA [None]
  - CHEST PAIN [None]
